FAERS Safety Report 24025721 (Version 1)
Quarter: 2024Q2

REPORT INFORMATION
  Report Type: Spontaneous
  Country: US (occurrence: US)
  Receive Date: 20240628
  Receipt Date: 20240628
  Transmission Date: 20240716
  Serious: No
  Sender: FDA-Public Use
  Company Number: US-ROCHE-3419302

PATIENT
  Age: 43 Year
  Sex: Female

DRUGS (2)
  1. PHESGO [Suspect]
     Active Substance: HYALURONIDASE-ZZXF\PERTUZUMAB\TRASTUZUMAB
     Indication: HER2 positive breast cancer
     Route: 058
     Dates: start: 20211210
  2. IBUPROFEN [Concomitant]
     Active Substance: IBUPROFEN
     Indication: Headache
     Route: 065

REACTIONS (2)
  - Headache [Not Recovered/Not Resolved]
  - Injection site pain [Not Recovered/Not Resolved]
